FAERS Safety Report 10229832 (Version 1)
Quarter: 2014Q2

REPORT INFORMATION
  Report Type: Spontaneous
  Country: GB (occurrence: GB)
  Receive Date: 20140611
  Receipt Date: 20140611
  Transmission Date: 20141212
  Serious: Yes (Other)
  Sender: FDA-Public Use
  Company Number: GB-AMGEN-GBRSP2014042211

PATIENT
  Age: 29 Year
  Sex: 0

DRUGS (1)
  1. NPLATE [Suspect]
     Indication: PRODUCT USED FOR UNKNOWN INDICATION
     Dosage: 10 MUG/KG, UNK
     Route: 065
     Dates: start: 200907

REACTIONS (5)
  - Therapeutic response decreased [Unknown]
  - Pregnancy [Unknown]
  - Gingival bleeding [Unknown]
  - Menorrhagia [Unknown]
  - Platelet count abnormal [Unknown]
